FAERS Safety Report 7729446-0 (Version None)
Quarter: 2011Q3

REPORT INFORMATION
  Report Type: 
  Country: None (occurrence: None)
  Receive Date: 20110906
  Receipt Date: 20110824
  Transmission Date: 20111222
  Serious: Yes (Hospitalization, Other)
  Sender: FDA-Public Use
  Company Number: ES-ELI_LILLY_AND_COMPANY-ES201107007461

PATIENT
  Sex: Female
  Weight: 60 kg

DRUGS (7)
  1. SOMAZINA [Concomitant]
     Dosage: 1000 MG, QD
     Route: 048
     Dates: start: 20110716
  2. LANTUS [Concomitant]
     Dosage: 12 IU, QD
     Route: 058
     Dates: start: 20050101
  3. FUROSEMIDE [Concomitant]
     Indication: BLOOD PRESSURE
     Dosage: 1 DF, QD
     Route: 048
     Dates: start: 20110716
  4. OMEPRAZOLE [Concomitant]
     Dosage: 1 DF, QD
     Route: 048
     Dates: start: 20110716
  5. ATORVASTATINA [Concomitant]
     Dosage: 40 MG, QD
     Route: 048
     Dates: start: 20110716
  6. CEPRANDAL [Concomitant]
     Dosage: 1 DF, QD
     Route: 048
     Dates: start: 20110716
  7. FORTEO [Suspect]
     Indication: OSTEOPOROSIS
     Dosage: 20 UG, QD
     Route: 058
     Dates: start: 20101210

REACTIONS (2)
  - DIARRHOEA [None]
  - GRAND MAL CONVULSION [None]
